FAERS Safety Report 4425307-3 (Version None)
Quarter: 2004Q3

REPORT INFORMATION
  Report Type: 
  Country: None (occurrence: None)
  Receive Date: 20040812
  Receipt Date: 20040812
  Transmission Date: 20050211
  Serious: No
  Sender: FDA-Public Use
  Company Number: None

PATIENT
  Age: 53 Year
  Sex: Male
  Weight: 89.3586 kg

DRUGS (10)
  1. SIRSPHERE [Suspect]
     Indication: COLON CANCER METASTATIC
     Dosage: FREQUENCY X 2
     Dates: start: 20030312
  2. SIRSPHERE [Suspect]
     Indication: METASTASES TO LIVER
     Dosage: FREQUENCY X 2
     Dates: start: 20030312
  3. SIRSPHERE [Suspect]
     Indication: COLON CANCER METASTATIC
     Dosage: FREQUENCY X 2
     Dates: start: 20030429
  4. SIRSPHERE [Suspect]
     Indication: METASTASES TO LIVER
     Dosage: FREQUENCY X 2
     Dates: start: 20030429
  5. FLUOROURACIL [Concomitant]
  6. LEUCOVORIN CALCIUM [Concomitant]
  7. CAMPTOSAR [Concomitant]
  8. XELODA [Concomitant]
  9. FOLFOX-6.5 [Concomitant]
  10. AVASTIN [Concomitant]

REACTIONS (4)
  - HEPATIC CIRRHOSIS [None]
  - PORTAL HYPERTENSION [None]
  - SPLENOMEGALY [None]
  - VARICES OESOPHAGEAL [None]
